FAERS Safety Report 11444765 (Version 1)
Quarter: 2015Q3

REPORT INFORMATION
  Report Type: Spontaneous
  Country: NO (occurrence: NO)
  Receive Date: 20150902
  Receipt Date: 20150902
  Transmission Date: 20151125
  Serious: Yes (Other)
  Sender: FDA-Public Use
  Company Number: NO-ASTRAZENECA-2015SE82114

PATIENT
  Age: 70 Year
  Sex: Female

DRUGS (3)
  1. LERCANIDIPINE [Interacting]
     Active Substance: LERCANIDIPINE
     Route: 065
  2. MODURETIC MITE [Interacting]
     Active Substance: AMILORIDE HYDROCHLORIDE\HYDROCHLOROTHIAZIDE
     Route: 065
  3. ATACAND [Suspect]
     Active Substance: CANDESARTAN CILEXETIL
     Route: 048

REACTIONS (2)
  - Rash pruritic [Unknown]
  - Drug interaction [Unknown]
